FAERS Safety Report 9147433 (Version 1)
Quarter: 2013Q1

REPORT INFORMATION
  Report Type: Spontaneous
  Country: CO (occurrence: None)
  Receive Date: 20130212
  Receipt Date: 20130212
  Transmission Date: 20140127
  Serious: Yes (Death, Other)
  Sender: FDA-Public Use
  Company Number: 2013P1001888

PATIENT
  Sex: 0

DRUGS (4)
  1. RIFAMPIN [Suspect]
     Indication: TUBERCULOSIS
  2. ITRACONAZOLE [Suspect]
     Route: 048
  3. CIPROFLOXACIN [Suspect]
  4. AMPHOTERICIN B [Suspect]

REACTIONS (2)
  - Treatment failure [None]
  - Drug interaction [None]
